FAERS Safety Report 7940741-2 (Version None)
Quarter: 2011Q4

REPORT INFORMATION
  Report Type: 
  Country: None (occurrence: None)
  Receive Date: 20111114
  Receipt Date: 20110824
  Transmission Date: 20120403
  Serious: Yes (Other)
  Sender: FDA-Public Use
  Company Number: 2011S1000553

PATIENT
  Sex: Male

DRUGS (5)
  1. PIPERACILLIN AND TAZOBACTAM [Concomitant]
  2. CUBICIN [Suspect]
     Indication: STAPHYLOCOCCAL INFECTION
     Dosage: 350 MG;Q48H;IV
     Route: 042
  3. LINEZOLID [Concomitant]
  4. VANCOMYCIN [Concomitant]
  5. ALL OTHER THERAPEUTIC PRODUCTS [Concomitant]

REACTIONS (1)
  - PARASPINAL ABSCESS [None]
